FAERS Safety Report 16304301 (Version 1)
Quarter: 2019Q2

REPORT INFORMATION
  Report Type: Spontaneous
  Country: US (occurrence: US)
  Receive Date: 20190511
  Receipt Date: 20190511
  Transmission Date: 20190711
  Serious: Yes (Hospitalization, Disabling)
  Sender: FDA-Public Use
  Company Number: None

PATIENT
  Age: 51 Year
  Sex: Male
  Weight: 77.11 kg

DRUGS (1)
  1. CONTRAST WITH GADOLINIUM [Suspect]
     Active Substance: GADOLINIUM

REACTIONS (3)
  - Burning sensation [None]
  - Contrast media reaction [None]
  - Loss of consciousness [None]
